FAERS Safety Report 4785031-4 (Version None)
Quarter: 2005Q3

REPORT INFORMATION
  Report Type: 
  Country: None (occurrence: None)
  Receive Date: 20050928
  Receipt Date: 20050912
  Transmission Date: 20060218
  Serious: Yes (Hospitalization, Other)
  Sender: FDA-Public Use
  Company Number: US_0503113601

PATIENT
  Age: 51 Year
  Sex: Male
  Weight: 102 kg

DRUGS (22)
  1. ZYPREXA [Suspect]
     Indication: ANXIETY
     Dosage: 15 MG/2 AT BEDTIME
     Dates: start: 20030602, end: 20050101
  2. LABETALOL [Concomitant]
  3. PAXIL [Concomitant]
  4. BENZOTROPINE (BENZATROPINE MESILATE) [Concomitant]
  5. ALPRAZOLAM [Concomitant]
  6. DILANTIN [Concomitant]
  7. LOTENSIN [Concomitant]
  8. CLONIDINE [Concomitant]
  9. CLONAZEPAM [Concomitant]
  10. HYDROCHLOROTHIAZIDE [Concomitant]
  11. ALTACE [Concomitant]
  12. CARTIA XT [Concomitant]
  13. DIOVAN [Concomitant]
  14. DOXAZOSIN [Concomitant]
  15. METHYLPREDNISOLONE [Concomitant]
  16. PROTONIX [Concomitant]
  17. CARISOPRODOL [Concomitant]
  18. TRAMADOL [Concomitant]
  19. PHENAZOPYRIDINE [Concomitant]
  20. OXYBUTYNIN [Concomitant]
  21. CYCLOBENZAPRINE HCL [Concomitant]
  22. LORATADINE [Concomitant]

REACTIONS (9)
  - ABDOMINAL PAIN [None]
  - ASPARTATE AMINOTRANSFERASE INCREASED [None]
  - CHEST DISCOMFORT [None]
  - DIABETES MELLITUS NON-INSULIN-DEPENDENT [None]
  - GLYCOSYLATED HAEMOGLOBIN INCREASED [None]
  - HYPOKALAEMIA [None]
  - LABILE HYPERTENSION [None]
  - PANCREATITIS [None]
  - PRESCRIBED OVERDOSE [None]
